FAERS Safety Report 23261507 (Version 1)
Quarter: 2023Q4

REPORT INFORMATION
  Report Type: Spontaneous
  Country: US (occurrence: US)
  Receive Date: 20231205
  Receipt Date: 20231205
  Transmission Date: 20240110
  Serious: No
  Sender: FDA-Public Use
  Company Number: US-NOVAST LABORATORIES INC.-2023NOV000294

PATIENT

DRUGS (2)
  1. CARISOPRODOL [Suspect]
     Active Substance: CARISOPRODOL
     Indication: Concussion
     Dosage: UNK
     Route: 065
  2. CARISOPRODOL [Suspect]
     Active Substance: CARISOPRODOL
     Indication: Pain

REACTIONS (4)
  - Vitreous floaters [Recovering/Resolving]
  - Vision blurred [Recovering/Resolving]
  - Product use in unapproved indication [Unknown]
  - Product use issue [Unknown]
